FAERS Safety Report 5708360-6 (Version None)
Quarter: 2008Q2

REPORT INFORMATION
  Report Type: 
  Country: None (occurrence: None)
  Receive Date: 20080417
  Receipt Date: 20080410
  Transmission Date: 20081010
  Serious: No
  Sender: FDA-Public Use
  Company Number: US-BAXTER-2008BH001982

PATIENT
  Age: 73 Year
  Sex: Female
  Weight: 53 kg

DRUGS (3)
  1. HEPARIN SODIUM [Suspect]
     Indication: PERIPHERAL VASCULAR DISORDER
     Route: 058
     Dates: start: 20080222, end: 20080226
  2. WARFARIN SODIUM [Concomitant]
     Indication: PERIPHERAL VASCULAR DISORDER
     Route: 048
  3. METOPROLOL TARTRATE [Concomitant]
     Indication: ATRIAL FIBRILLATION
     Route: 048

REACTIONS (8)
  - ANORECTAL DISCOMFORT [None]
  - HEART RATE INCREASED [None]
  - PAIN [None]
  - PAIN IN EXTREMITY [None]
  - PALPITATIONS [None]
  - STAPHYLOCOCCAL INFECTION [None]
  - STOMACH DISCOMFORT [None]
  - SUBCUTANEOUS ABSCESS [None]
